FAERS Safety Report 15772687 (Version 1)
Quarter: 2018Q4

REPORT INFORMATION
  Report Type: Spontaneous
  Country: FR (occurrence: FR)
  Receive Date: 20181228
  Receipt Date: 20181228
  Transmission Date: 20190205
  Serious: Yes (Hospitalization)
  Sender: FDA-Public Use
  Company Number: FR-PFIZER INC-2018531568

PATIENT
  Age: 47 Year
  Sex: Female

DRUGS (5)
  1. RIVOTRIL [Suspect]
     Active Substance: CLONAZEPAM
     Indication: NEUROMYELITIS OPTICA SPECTRUM DISORDER
     Dosage: 7 GTT, 1X/DAY (EVENING)
     Route: 048
     Dates: start: 20130909
  2. BACLOFENE [Suspect]
     Active Substance: BACLOFEN
     Indication: HYPERTONIA
     Dosage: 1 G, 1X/DAY (MORNING)
     Route: 048
     Dates: start: 20160111
  3. GABAPENTIN. [Suspect]
     Active Substance: GABAPENTIN
     Indication: NEUROMYELITIS OPTICA SPECTRUM DISORDER
     Dosage: 3 DF, DAILY (300-400-300)
     Route: 048
     Dates: start: 20130909
  4. CELLCEPT [Suspect]
     Active Substance: MYCOPHENOLATE MOFETIL\MYCOPHENOLATE MOFETIL HYDROCHLORIDE
     Indication: NEUROMYELITIS OPTICA SPECTRUM DISORDER
     Dosage: 1 G, 2X/DAY (MORNING AND EVENING)
     Route: 048
     Dates: start: 20130920
  5. ESOMEPRAZOLE MAGNESIUM. [Suspect]
     Active Substance: ESOMEPRAZOLE MAGNESIUM
     Indication: PAIN
     Dosage: 40 MG, 1X/DAY
     Route: 048
     Dates: start: 201305

REACTIONS (5)
  - Product use in unapproved indication [Unknown]
  - Pancreatitis chronic [Recovered/Resolved]
  - Abdominal pain [Recovered/Resolved]
  - Hyperlipasaemia [Recovered/Resolved]
  - Diarrhoea [Recovered/Resolved]

NARRATIVE: CASE EVENT DATE: 201808
